FAERS Safety Report 10485108 (Version 1)
Quarter: 2014Q3

REPORT INFORMATION
  Report Type: Report from Study
  Country: US (occurrence: US)
  Receive Date: 20140930
  Receipt Date: 20140930
  Transmission Date: 20150326
  Serious: No
  Sender: FDA-Public Use
  Company Number: US-ALEXION-A200700329

PATIENT
  Age: 60 Year
  Sex: Male

DRUGS (1)
  1. SOLIRIS [Suspect]
     Active Substance: ECULIZUMAB
     Indication: PAROXYSMAL NOCTURNAL HAEMOGLOBINURIA
     Dosage: UNK, EVERY 14 DAYS
     Route: 042

REACTIONS (15)
  - Disturbance in attention [Unknown]
  - Haemoglobinuria [Unknown]
  - Headache [Unknown]
  - Respiratory tract infection [Unknown]
  - Dysphonia [Unknown]
  - Hiccups [Unknown]
  - Abdominal pain [Unknown]
  - Dysphagia [Unknown]
  - Pain [Unknown]
  - Asthenia [Not Recovered/Not Resolved]
  - Bronchitis [Recovering/Resolving]
  - Fatigue [Unknown]
  - Dyspnoea [Recovering/Resolving]
  - Quality of life decreased [Unknown]
  - Chromaturia [Unknown]

NARRATIVE: CASE EVENT DATE: 201004
